FAERS Safety Report 7408327-6 (Version None)
Quarter: 2011Q1

REPORT INFORMATION
  Report Type: 
  Country: None (occurrence: None)
  Receive Date: 20110301
  Receipt Date: 20100716
  Transmission Date: 20110831
  Serious: Yes (Disabling, Other)
  Sender: FDA-Public Use
  Company Number: ALA_01157_2010

PATIENT
  Sex: Female
  Weight: 78.9259 kg

DRUGS (9)
  1. BENADRYL [Concomitant]
  2. TRAZODONE [Concomitant]
  3. TETRABENAZINE [Concomitant]
  4. PRILOSEC [Concomitant]
  5. ADDERALL 10 [Concomitant]
  6. REGLAN [Suspect]
     Indication: GASTROOESOPHAGEAL REFLUX DISEASE
     Dosage: (5-10MG ORAL)
     Route: 048
     Dates: start: 20000611, end: 20080801
  7. VALIUM [Concomitant]
  8. ATIVAN [Concomitant]
  9. PEPCID [Concomitant]

REACTIONS (4)
  - DYSKINESIA [None]
  - EXTRAPYRAMIDAL DISORDER [None]
  - TARDIVE DYSKINESIA [None]
  - DYSTONIA [None]
